FAERS Safety Report 22110755 (Version 3)
Quarter: 2023Q2

REPORT INFORMATION
  Report Type: Spontaneous
  Country: CN (occurrence: None)
  Receive Date: 20230317
  Receipt Date: 20230419
  Transmission Date: 20230722
  Serious: Yes (Hospitalization, Other)
  Sender: FDA-Public Use
  Company Number: 2023A061589

PATIENT
  Age: 75 Year
  Sex: Female
  Weight: 58 kg

DRUGS (4)
  1. IMFINZI [Suspect]
     Active Substance: DURVALUMAB
     Indication: Small cell lung cancer extensive stage
     Dosage: 500 MGX2 VIALS, DAILY
     Route: 042
     Dates: start: 202210
  2. CARBOPLATIN [Concomitant]
     Active Substance: CARBOPLATIN
  3. CISPLATIN [Concomitant]
     Active Substance: CISPLATIN
  4. ETOPOSIDE [Concomitant]
     Active Substance: ETOPOSIDE

REACTIONS (8)
  - Malignant neoplasm progression [Recovering/Resolving]
  - Muscular weakness [Unknown]
  - Incontinence [Recovering/Resolving]
  - Altered state of consciousness [Unknown]
  - Metastases to skin [Recovering/Resolving]
  - Anorectal sensory loss [Recovering/Resolving]
  - Cerebral atrophy [Not Recovered/Not Resolved]
  - COVID-19 [Unknown]
